FAERS Safety Report 8130461-6 (Version None)
Quarter: 2012Q1

REPORT INFORMATION
  Report Type: 
  Country: None (occurrence: None)
  Receive Date: 20120210
  Receipt Date: 20120207
  Transmission Date: 20120608
  Serious: Yes (Other)
  Sender: FDA-Public Use
  Company Number: JP-MERCK-1202USA01436

PATIENT
  Age: 66 Year
  Sex: Male

DRUGS (2)
  1. AMARYL [Concomitant]
     Route: 065
  2. JANUVIA [Suspect]
     Indication: TYPE 2 DIABETES MELLITUS
     Route: 048
     Dates: start: 20111217, end: 20120131

REACTIONS (1)
  - ANGINA PECTORIS [None]
